FAERS Safety Report 7426172-2 (Version None)
Quarter: 2011Q2

REPORT INFORMATION
  Report Type: 
  Country: None (occurrence: None)
  Receive Date: 20110420
  Receipt Date: 20110414
  Transmission Date: 20111010
  Serious: Yes (Hospitalization)
  Sender: FDA-Public Use
  Company Number: PHHO2010US18388

PATIENT
  Sex: Female
  Weight: 85 kg

DRUGS (5)
  1. TASIGNA [Suspect]
     Dosage: UNK
     Dates: start: 20101128, end: 20101130
  2. TASIGNA [Suspect]
     Indication: CHRONIC MYELOID LEUKAEMIA
     Dosage: 300 MG, BID
     Route: 048
     Dates: start: 20080616, end: 20101118
  3. TASIGNA [Suspect]
     Dosage: NO TREATMENT
     Dates: start: 20101201, end: 20101207
  4. TASIGNA [Suspect]
     Dosage: UNK
     Dates: start: 20101208, end: 20101214
  5. TASIGNA [Suspect]
     Dosage: NO TREATMENT
     Dates: start: 20101119, end: 20101127

REACTIONS (4)
  - RENAL FAILURE ACUTE [None]
  - HYPOXIA [None]
  - CORONARY ARTERY DISEASE [None]
  - PULMONARY OEDEMA [None]
